FAERS Safety Report 8469683-3 (Version None)
Quarter: 2012Q2

REPORT INFORMATION
  Report Type: 
  Country: None (occurrence: None)
  Receive Date: 20120626
  Receipt Date: 20120619
  Transmission Date: 20120825
  Serious: Yes (Other)
  Sender: FDA-Public Use
  Company Number: IE-ROCHE-1081199

PATIENT
  Sex: Female
  Weight: 63.7 kg

DRUGS (11)
  1. CETRINE [Concomitant]
     Route: 065
  2. CALCICHEW D3 [Concomitant]
     Route: 065
  3. FLUTICASONE PROPIONATE/SALMETEROL [Concomitant]
     Route: 065
  4. YASMIN [Concomitant]
     Route: 065
  5. SINGULAIR [Concomitant]
     Route: 065
  6. XOLAIR [Suspect]
     Indication: ASTHMA
     Route: 058
     Dates: start: 20120530
  7. ADRENALIN IN OIL INJ [Concomitant]
     Route: 065
  8. FLUTICASONE PROPIONATE [Concomitant]
     Route: 065
  9. COMBIVENT [Concomitant]
     Route: 065
  10. XOLAIR [Suspect]
     Route: 058
     Dates: start: 20120613
  11. ALBUTEROL [Concomitant]
     Route: 065

REACTIONS (5)
  - THROAT TIGHTNESS [None]
  - HEADACHE [None]
  - VISION BLURRED [None]
  - NAUSEA [None]
  - ABDOMINAL PAIN UPPER [None]
